FAERS Safety Report 24248655 (Version 1)
Quarter: 2024Q3

REPORT INFORMATION
  Report Type: Spontaneous
  Country: US (occurrence: US)
  Receive Date: 20240826
  Receipt Date: 20240826
  Transmission Date: 20241016
  Serious: Yes (Other)
  Sender: BRISTOL MYERS SQUIBB
  Company Number: US-BRISTOL-MYERS SQUIBB COMPANY-2024-133836

PATIENT
  Age: 86 Year
  Sex: Female
  Weight: 79.1 kg

DRUGS (2)
  1. ELIQUIS [Suspect]
     Active Substance: APIXABAN
     Indication: Pulmonary embolism
     Dosage: INITIAL 7 DAY LOADING DOSE
     Route: 048
  2. ELIQUIS [Suspect]
     Active Substance: APIXABAN
     Route: 048
     Dates: start: 20240710

REACTIONS (3)
  - Breast cancer [Unknown]
  - Tumour marker increased [Unknown]
  - Liver function test increased [Unknown]
